FAERS Safety Report 9181786 (Version 1)
Quarter: 2013Q1

REPORT INFORMATION
  Report Type: Spontaneous
  Country: FR (occurrence: FR)
  Receive Date: 20130322
  Receipt Date: 20130322
  Transmission Date: 20140127
  Serious: Yes (Other)
  Sender: FDA-Public Use
  Company Number: FR-PFIZER INC-2013087649

PATIENT
  Age: 8 Year
  Sex: Female

DRUGS (1)
  1. ADVIL ENFANTS ET NOURRISSONS [Suspect]
     Dosage: UNK

REACTIONS (1)
  - Cellulitis [Unknown]
